FAERS Safety Report 25148315 (Version 1)
Quarter: 2025Q2

REPORT INFORMATION
  Report Type: Spontaneous
  Country: GB (occurrence: GB)
  Receive Date: 20250402
  Receipt Date: 20250402
  Transmission Date: 20250717
  Serious: Yes (Hospitalization, Other)
  Sender: AUROBINDO
  Company Number: GB-PHARMVIT-4556-3352-ER25-RN1377

PATIENT
  Age: 27 Year
  Sex: Female

DRUGS (1)
  1. PREDNISOLONE [Suspect]
     Active Substance: PREDNISOLONE
     Indication: Product used for unknown indication
     Route: 065

REACTIONS (4)
  - Immunosuppression [Recovered/Resolved]
  - Mycoplasma test positive [Recovered/Resolved]
  - Mycoplasma infection [Recovered/Resolved]
  - Arthritis bacterial [Recovered/Resolved]
